FAERS Safety Report 5113406-2 (Version None)
Quarter: 2006Q3

REPORT INFORMATION
  Report Type: 
  Country: None (occurrence: None)
  Receive Date: 20060920
  Receipt Date: 20060915
  Transmission Date: 20061208
  Serious: Yes (Hospitalization, Other)
  Sender: FDA-Public Use
  Company Number: 0604256US

PATIENT
  Age: 38 Year
  Sex: Female

DRUGS (2)
  1. ALESION [Suspect]
     Indication: ECZEMA
     Dosage: 20 MG, QD, ORAL
     Route: 048
     Dates: start: 20060805, end: 20060806
  2. RIZE            (CLOTIAZEPAM) [Suspect]
     Indication: DEPRESSION
     Dosage: 15 MG, ORAL
     Route: 048
     Dates: start: 20060627, end: 20060808

REACTIONS (5)
  - ABDOMINAL PAIN UPPER [None]
  - ALANINE AMINOTRANSFERASE INCREASED [None]
  - ASPARTATE AMINOTRANSFERASE INCREASED [None]
  - BLOOD BILIRUBIN INCREASED [None]
  - BLOOD LACTATE DEHYDROGENASE INCREASED [None]
